FAERS Safety Report 21347066 (Version 1)
Quarter: 2022Q3

REPORT INFORMATION
  Report Type: Spontaneous
  Country: US (occurrence: US)
  Receive Date: 20220919
  Receipt Date: 20220919
  Transmission Date: 20221027
  Serious: No
  Sender: FDA-Public Use
  Company Number: US-SA-SAC20220912001596

PATIENT
  Sex: Female

DRUGS (2)
  1. DUPIXENT [Suspect]
     Active Substance: DUPILUMAB
     Dosage: 300 MG
     Route: 058
  2. DUPIXENT [Suspect]
     Active Substance: DUPILUMAB
     Dosage: ONE INJECTION EVERY 3 WEEKS
     Route: 058

REACTIONS (3)
  - Swelling of eyelid [Recovering/Resolving]
  - Eyelid irritation [Recovering/Resolving]
  - Product use issue [Unknown]
